FAERS Safety Report 8087352-9 (Version None)
Quarter: 2012Q1

REPORT INFORMATION
  Report Type: 
  Country: None (occurrence: None)
  Receive Date: 20120128
  Receipt Date: 20110426
  Transmission Date: 20120608
  Serious: No
  Sender: FDA-Public Use
  Company Number: US-ABBOTT-11P-163-0722261-00

PATIENT
  Sex: Female

DRUGS (2)
  1. HUMIRA [Suspect]
     Indication: CROHN'S DISEASE
     Dates: start: 20101101, end: 20101101
  2. HUMIRA [Suspect]
     Dosage: LOT NUMBER IS FOR THIS DOSE
     Dates: start: 20110423

REACTIONS (3)
  - PNEUMONIA [None]
  - PYREXIA [None]
  - PAIN [None]
